FAERS Safety Report 9215124 (Version 1)
Quarter: 2013Q2

REPORT INFORMATION
  Report Type: Spontaneous
  Country: JP (occurrence: JP)
  Receive Date: 20130405
  Receipt Date: 20130405
  Transmission Date: 20140414
  Serious: Yes (Life-Threatening)
  Sender: FDA-Public Use
  Company Number: JP-ASTRAZENECA-2013SE17370

PATIENT
  Age: 86 Year
  Sex: Male
  Weight: 70 kg

DRUGS (12)
  1. NEXIUM [Suspect]
     Indication: GASTRIC ULCER
     Route: 048
     Dates: start: 20130215, end: 20130218
  2. ZOSYN [Suspect]
     Indication: PNEUMONIA
     Route: 041
     Dates: start: 20130207, end: 20130219
  3. VANCOMYCIN HYDROCHLORIDE [Concomitant]
     Indication: CLOSTRIDIUM DIFFICILE COLITIS
     Route: 048
     Dates: start: 20130217, end: 20130218
  4. E KEPPRA [Concomitant]
     Indication: SUBARACHNOID HAEMORRHAGE
     Route: 048
     Dates: start: 20130125
  5. ALEVIATIN [Concomitant]
     Indication: SUBARACHNOID HAEMORRHAGE
     Route: 048
     Dates: start: 20130124
  6. NOVORAPID [Concomitant]
     Indication: TYPE 2 DIABETES MELLITUS
     Dosage: DOSE UNKNOWN
     Route: 058
  7. ENTERONON-R [Concomitant]
     Indication: CLOSTRIDIUM DIFFICILE COLITIS
     Route: 048
     Dates: start: 20130217
  8. BAYASPIRIN [Concomitant]
     Indication: CARDIAC FAILURE CONGESTIVE
     Route: 048
     Dates: start: 20130122
  9. NITOROL [Concomitant]
     Indication: CARDIAC FAILURE CONGESTIVE
     Route: 048
     Dates: start: 20130122
  10. MAINTATE [Concomitant]
     Indication: CARDIAC FAILURE CONGESTIVE
     Route: 048
     Dates: start: 20130122
  11. RENIVACE [Concomitant]
     Indication: CARDIAC FAILURE CONGESTIVE
     Route: 048
     Dates: start: 20130122
  12. HANP [Concomitant]
     Indication: CARDIAC FAILURE CONGESTIVE
     Route: 041
     Dates: start: 20130129, end: 20130224

REACTIONS (3)
  - Agranulocytosis [Recovered/Resolved]
  - Clostridium difficile colitis [Recovering/Resolving]
  - Intentional drug misuse [Unknown]
